FAERS Safety Report 6045069-6 (Version None)
Quarter: 2009Q1

REPORT INFORMATION
  Report Type: 
  Country: None (occurrence: None)
  Receive Date: 20090121
  Receipt Date: 20090108
  Transmission Date: 20090719
  Serious: Yes (Hospitalization)
  Sender: FDA-Public Use
  Company Number: HK-PFIZER INC-2009157154

PATIENT
  Age: 59 Year
  Sex: Female

DRUGS (13)
  1. SERTRALINE HCL [Suspect]
     Dosage: UNK
  2. VERAPAMIL HCL [Suspect]
     Dosage: UNK
  3. LITHIUM CARBONATE [Suspect]
     Indication: BIPOLAR DISORDER
     Dosage: 660 MG, 2X/DAY
  4. PROPRANOLOL [Suspect]
     Dosage: 10 MG, 3X/DAY
  5. DEANXIT [Suspect]
     Dosage: UNK
  6. FLUNITRAZEPAM [Suspect]
     Dosage: 2 MG, 1X/DAY
  7. MIRTAZAPINE [Suspect]
     Dosage: UNK
  8. AMILORIDE HCL AND HYDROCHLOROTHIAZIDE [Suspect]
     Indication: HYPERTENSION
     Dosage: UNK
  9. ACYCLOVIR [Concomitant]
  10. CEFOTAXIME [Concomitant]
  11. PHENYTOIN [Concomitant]
     Indication: STATUS EPILEPTICUS
  12. LORAZEPAM [Concomitant]
     Indication: STATUS EPILEPTICUS
  13. ALL OTHER THERAPEUTIC PRODUCTS [Concomitant]

REACTIONS (8)
  - CONFUSIONAL STATE [None]
  - DRUG INTERACTION [None]
  - DRUG TOXICITY [None]
  - MAJOR DEPRESSION [None]
  - MENTAL STATUS CHANGES [None]
  - NEUROTOXICITY [None]
  - PYREXIA [None]
  - STATUS EPILEPTICUS [None]
